FAERS Safety Report 20529854 (Version 3)
Quarter: 2022Q1

REPORT INFORMATION
  Report Type: Report from Study
  Country: None (occurrence: CN)
  Receive Date: 20220301
  Receipt Date: 20220317
  Transmission Date: 20220423
  Serious: Yes (Hospitalization)
  Sender: FDA-Public Use
  Company Number: CN-Jiangsu Hengrui Medicine Co., Ltd.-2126311

PATIENT
  Age: 54 Year
  Sex: Male
  Weight: 47.2 kg

DRUGS (5)
  1. IRINOTECAN HYDROCHLORIDE [Suspect]
     Active Substance: IRINOTECAN HYDROCHLORIDE
     Indication: Pancreatic carcinoma
     Route: 041
     Dates: start: 20211214, end: 20220208
  2. FUZULOPARIB [Suspect]
     Active Substance: FUZULOPARIB
     Route: 048
     Dates: start: 20211214
  3. OXALIPLATIN FOR INJECTION [Suspect]
     Active Substance: OXALIPLATIN
     Route: 041
     Dates: start: 20211214, end: 20220208
  4. LEUCOVORIN CALCIUM [Suspect]
     Active Substance: LEUCOVORIN CALCIUM
     Route: 041
     Dates: start: 20211214, end: 20220208
  5. FLUOROURACIL [Suspect]
     Active Substance: FLUOROURACIL
     Route: 041
     Dates: start: 20211214, end: 20220208

REACTIONS (1)
  - Hypokalaemia [Recovered/Resolved]

NARRATIVE: CASE EVENT DATE: 20220221
